FAERS Safety Report 5807087-X (Version None)
Quarter: 2008Q3

REPORT INFORMATION
  Report Type: 
  Country: None (occurrence: None)
  Receive Date: 20080708
  Receipt Date: 20080630
  Transmission Date: 20090109
  Serious: Yes (Disabling, Other)
  Sender: FDA-Public Use
  Company Number: 2007SP018566

PATIENT
  Age: 31 Year
  Sex: Female
  Weight: 71 kg

DRUGS (4)
  1. TEMODAL [Suspect]
     Indication: GLIOMA
     Dosage: 135 MG QD ; 150 MG/M2; QD; 200 MG/M2; QD
     Dates: start: 20070316
  2. TEMODAL [Suspect]
     Indication: GLIOMA
     Dosage: 135 MG QD ; 150 MG/M2; QD; 200 MG/M2; QD
     Dates: start: 20070718
  3. EPILIM [Concomitant]
  4. DEXAMETHASONE [Concomitant]

REACTIONS (9)
  - AREFLEXIA [None]
  - ASTHENIA [None]
  - CACHEXIA [None]
  - DYSKINESIA [None]
  - GRAND MAL CONVULSION [None]
  - LOCKED-IN SYNDROME [None]
  - NEUROPATHY PERIPHERAL [None]
  - PARAESTHESIA [None]
  - POLYNEUROPATHY [None]
